FAERS Safety Report 13904645 (Version 1)
Quarter: 2017Q3

REPORT INFORMATION
  Report Type: Spontaneous
  Country: US (occurrence: US)
  Receive Date: 20170824
  Receipt Date: 20170824
  Transmission Date: 20171127
  Serious: No
  Sender: FDA-Public Use
  Company Number: None

PATIENT
  Age: 67 Year
  Sex: Male

DRUGS (12)
  1. COUMADIN [Concomitant]
     Active Substance: WARFARIN SODIUM
  2. CAPECITABINE. [Suspect]
     Active Substance: CAPECITABINE
     Indication: PANCREATIC CARCINOMA
     Route: 048
     Dates: start: 20170817, end: 20170824
  3. ZOFRAN [Concomitant]
     Active Substance: ONDANSETRON HYDROCHLORIDE
  4. PERCOCET [Concomitant]
     Active Substance: ACETAMINOPHEN\OXYCODONE HYDROCHLORIDE
  5. SYNTHROID [Concomitant]
     Active Substance: LEVOTHYROXINE SODIUM
  6. CAPECITABINE. [Suspect]
     Active Substance: CAPECITABINE
     Indication: TONSIL CANCER
     Route: 048
     Dates: start: 20170817, end: 20170824
  7. METOPROLOL. [Concomitant]
     Active Substance: METOPROLOL
  8. CELEXA [Concomitant]
     Active Substance: CITALOPRAM HYDROBROMIDE
  9. CREON [Concomitant]
     Active Substance: PANCRELIPASE AMYLASE\PANCRELIPASE LIPASE\PANCRELIPASE PROTEASE
  10. NEURONTIN [Concomitant]
     Active Substance: GABAPENTIN
  11. SENOKOT [Concomitant]
     Active Substance: SENNOSIDES
  12. FENTANYL. [Concomitant]
     Active Substance: FENTANYL

REACTIONS (4)
  - Diarrhoea [None]
  - Asthenia [None]
  - Fatigue [None]
  - Vomiting [None]

NARRATIVE: CASE EVENT DATE: 20170823
